FAERS Safety Report 11026640 (Version 1)
Quarter: 2015Q2

REPORT INFORMATION
  Report Type: Report from Study
  Country: US (occurrence: US)
  Receive Date: 20150414
  Receipt Date: 20150414
  Transmission Date: 20150821
  Serious: Yes (Other)
  Sender: FDA-Public Use
  Company Number: US-BAYER-2015-117915

PATIENT
  Age: 34 Year
  Sex: Male

DRUGS (1)
  1. NEXAVAR [Suspect]
     Active Substance: SORAFENIB
     Indication: SOFT TISSUE NEOPLASM
     Dosage: 400 MG, UNK
     Route: 048
     Dates: start: 20150123

REACTIONS (5)
  - Pain in extremity [None]
  - Erythema [None]
  - Product use issue [None]
  - Immunodeficiency [None]
  - Bacterial diarrhoea [None]
